FAERS Safety Report 4375582-9 (Version None)
Quarter: 2004Q2

REPORT INFORMATION
  Report Type: 
  Country: None (occurrence: None)
  Receive Date: 20040610
  Receipt Date: 20040520
  Transmission Date: 20050107
  Serious: Yes (Disabling)
  Sender: FDA-Public Use
  Company Number: US-MERCK-0405USA01543

PATIENT
  Age: 69 Year
  Sex: Female

DRUGS (10)
  1. LACTOBACILLUS ACIDOPHILUS (AS DRUG) [Concomitant]
     Route: 065
  2. ASPIRIN [Concomitant]
     Route: 065
  3. CEFACLOR [Concomitant]
     Route: 065
  4. BENTYL [Concomitant]
     Route: 065
  5. ERYTHROMYCIN [Concomitant]
     Route: 065
  6. ETHAMBUTOL HYDROCHLORIDE [Concomitant]
     Route: 065
  7. ZETIA [Suspect]
     Indication: BLOOD CHOLESTEROL INCREASED
     Route: 048
     Dates: start: 20040316
  8. ATIVAN [Concomitant]
     Route: 065
  9. RIFABUTIN [Concomitant]
     Route: 065
  10. BETAPACE [Concomitant]
     Route: 065

REACTIONS (3)
  - ARTHRALGIA [None]
  - ARTHRITIS [None]
  - MYALGIA [None]
